FAERS Safety Report 17917782 (Version 2)
Quarter: 2021Q4

REPORT INFORMATION
  Report Type: Spontaneous
  Country: CA (occurrence: CA)
  Receive Date: 20200619
  Receipt Date: 20211111
  Transmission Date: 20220303
  Serious: Yes (Other)
  Sender: FDA-Public Use
  Company Number: None

PATIENT
  Age: 59 Year
  Sex: Male

DRUGS (11)
  1. AMLODIPINE [Suspect]
     Active Substance: AMLODIPINE BESYLATE
     Indication: Product used for unknown indication
     Route: 065
  2. METFORMIN [Suspect]
     Active Substance: METFORMIN HYDROCHLORIDE
     Indication: Product used for unknown indication
     Dosage: 2 EVERY 1 DAYS
  3. ROSUVASTATIN CALCIUM [Suspect]
     Active Substance: ROSUVASTATIN CALCIUM
     Indication: Product used for unknown indication
     Route: 048
  4. IMODIUM [Suspect]
     Active Substance: LOPERAMIDE HYDROCHLORIDE
     Indication: Product used for unknown indication
     Dosage: DOSAGE FORM: NOT SPECIFIED
     Route: 065
  5. SANDOSTATIN [Suspect]
     Active Substance: OCTREOTIDE ACETATE
     Indication: Carcinoid tumour
     Dosage: DOSAGE FORM: NOT SPECIFIED
     Route: 030
  6. ZOPICLONE [Suspect]
     Active Substance: ZOPICLONE
     Indication: Product used for unknown indication
     Route: 048
  7. GLYBURIDE [Concomitant]
     Active Substance: GLYBURIDE
     Dosage: 2 EVERY 1 DAYS
     Route: 065
  8. HYDROCHLOROTHIAZIDE [Concomitant]
     Active Substance: HYDROCHLOROTHIAZIDE
     Dosage: 1 EVERY 1 DAYS
     Route: 065
  9. LUTETIUM OXODOTREOTIDE LU-177 [Concomitant]
     Active Substance: LUTETIUM OXODOTREOTIDE LU-177
     Route: 065
  10. QUINAPRIL [Concomitant]
     Active Substance: QUINAPRIL
     Route: 065
  11. Tranjenta [Concomitant]
     Dosage: 2 EVERY 1 DAYS
     Route: 065

REACTIONS (24)
  - Urticaria [Unknown]
  - 5-hydroxyindolacetic acid in urine increased [Unknown]
  - Arteriosclerosis coronary artery [Unknown]
  - Aspartate aminotransferase increased [Unknown]
  - Blood glucose increased [Unknown]
  - Blood mercury abnormal [Unknown]
  - Blood potassium decreased [Unknown]
  - Blood pressure systolic increased [Unknown]
  - Diarrhoea [Unknown]
  - Expired product administered [Unknown]
  - Gamma-glutamyltransferase increased [Unknown]
  - Glycosylated haemoglobin increased [Unknown]
  - Haematocrit decreased [Unknown]
  - Haemoglobin decreased [Unknown]
  - Hepatic neoplasm [Unknown]
  - Inappropriate schedule of product administration [Unknown]
  - Low density lipoprotein decreased [Unknown]
  - Nausea [Unknown]
  - Neoplasm [Unknown]
  - Platelet count decreased [Unknown]
  - Pruritus [Unknown]
  - Red blood cell count decreased [Unknown]
  - Syncope [Unknown]
  - Vomiting [Unknown]
